FAERS Safety Report 20916515 (Version 1)
Quarter: 2022Q2

REPORT INFORMATION
  Report Type: Spontaneous
  Country: None (occurrence: US)
  Receive Date: 20220605
  Receipt Date: 20220605
  Transmission Date: 20220721
  Serious: No
  Sender: FDA-Public Use
  Company Number: US-Jiangsu Hengrui Medicine Co., Ltd.-2129483

PATIENT
  Sex: Male
  Weight: 48.4 kg

DRUGS (3)
  1. CYCLOPHOSPHAMIDE [Suspect]
     Active Substance: CYCLOPHOSPHAMIDE
     Indication: Lymphodepletion
     Route: 017
     Dates: start: 20220510, end: 20220511
  2. FLUDARABINE [Suspect]
     Active Substance: FLUDARABINE PHOSPHATE
     Route: 017
     Dates: start: 20220510
  3. KYMRIAH [Suspect]
     Active Substance: TISAGENLECLEUCEL
     Route: 019

REACTIONS (1)
  - Neoplasm progression [Not Recovered/Not Resolved]
